FAERS Safety Report 6035384-4 (Version None)
Quarter: 2009Q1

REPORT INFORMATION
  Report Type: 
  Country: None (occurrence: None)
  Receive Date: 20090112
  Receipt Date: 20090112
  Transmission Date: 20090719
  Serious: Yes (Disabling)
  Sender: FDA-Public Use
  Company Number: None

PATIENT
  Age: 51 Year
  Sex: Female
  Weight: 86.1834 kg

DRUGS (6)
  1. CHANTIX [Suspect]
     Dosage: PER. DIRECTIONS
     Dates: start: 20080401
  2. CHANTIX [Suspect]
     Dosage: PER. DIRECTIONS
     Dates: start: 20080402
  3. CHANTIX [Suspect]
     Dosage: PER. DIRECTIONS
     Dates: start: 20080403
  4. CHANTIX [Suspect]
     Dosage: PER. DIRECTIONS
     Dates: start: 20080404
  5. CHANTIX [Suspect]
     Dosage: PER. DIRECTIONS
     Dates: start: 20080405
  6. CHANTIX [Suspect]
     Dosage: PER. DIRECTIONS
     Dates: start: 20080406

REACTIONS (5)
  - CENTRAL NERVOUS SYSTEM LESION [None]
  - EYE PAIN [None]
  - MULTIPLE SCLEROSIS [None]
  - OPTIC NEURITIS [None]
  - VISUAL ACUITY REDUCED [None]
